FAERS Safety Report 23489224 (Version 1)
Quarter: 2024Q1

REPORT INFORMATION
  Report Type: Spontaneous
  Country: EE (occurrence: EE)
  Receive Date: 20240206
  Receipt Date: 20240206
  Transmission Date: 20240410
  Serious: Yes (Other)
  Sender: FDA-Public Use
  Company Number: EE-ORGANON-O2401EST002525

PATIENT
  Age: 75 Year
  Sex: Male
  Weight: 79.8 kg

DRUGS (3)
  1. ELOCON [Suspect]
     Active Substance: MOMETASONE FUROATE
     Indication: Cutaneous T-cell lymphoma
     Dosage: UNK
  2. PREDNISOLONE [Concomitant]
     Active Substance: PREDNISOLONE
     Dosage: (FROM DECEMBER , 20 MGX 1)
  3. CLOBETASOL [Concomitant]
     Active Substance: CLOBETASOL
     Dosage: (FROM DECEMBER)

REACTIONS (4)
  - Cutaneous T-cell lymphoma [Unknown]
  - Pain [Unknown]
  - Condition aggravated [Unknown]
  - Product use in unapproved indication [Unknown]
